FAERS Safety Report 6867795-9 (Version None)
Quarter: 2010Q3

REPORT INFORMATION
  Report Type: 
  Country: None (occurrence: None)
  Receive Date: 20100721
  Receipt Date: 20100721
  Transmission Date: 20110219
  Serious: No
  Sender: FDA-Public Use
  Company Number: None

PATIENT
  Sex: Male
  Weight: 63.05 kg

DRUGS (2)
  1. ZOCOR [Suspect]
     Indication: CORONARY ARTERY BYPASS
     Dosage: ZOCOR 20MG 1 Q DAY P.O.
     Route: 048
     Dates: start: 20080601, end: 20100501
  2. ZOCOR [Suspect]
     Indication: PROPHYLAXIS
     Dosage: ZOCOR 20MG 1 Q DAY P.O.
     Route: 048
     Dates: start: 20080601, end: 20100501

REACTIONS (3)
  - ABNORMAL BEHAVIOUR [None]
  - COGNITIVE DISORDER [None]
  - DEPRESSION [None]
